FAERS Safety Report 9511394 (Version 1)
Quarter: 2013Q1

REPORT INFORMATION
  Report Type: Spontaneous
  Country: US (occurrence: None)
  Receive Date: 20130305
  Receipt Date: 20130305
  Transmission Date: 20140127
  Serious: Yes (Hospitalization)
  Sender: FDA-Public Use
  Company Number: 163-21880-12103321

PATIENT
  Sex: Female

DRUGS (10)
  1. REVLIMID (LENALIDOMIDE) (CAPSULES) [Suspect]
     Indication: PLASMA CELL MYELOMA
     Dosage: 25 MG, 1 IN 1 D, PO
     Route: 048
     Dates: start: 20100310, end: 20120601
  2. ACYCLOVIR (ACICLOVIR) [Concomitant]
  3. AMBIEN (ZOLPIDEM TARTRATE) [Concomitant]
  4. HEPARIN (HEPARIN) [Concomitant]
  5. VITAMINS [Concomitant]
  6. OXYCODONE (OXYCODONE) [Concomitant]
  7. SOMA (CARISOPRODOL) [Concomitant]
  8. TEMAZEPAM (TEMAZEPAM) [Concomitant]
  9. ZOMETA (ZOLEDRONIC ACID) [Concomitant]
  10. VELCADE (BORTEZOMIB) [Concomitant]

REACTIONS (2)
  - Pathological fracture [None]
  - Hip fracture [None]
